FAERS Safety Report 18775838 (Version 1)
Quarter: 2021Q1

REPORT INFORMATION
  Report Type: Spontaneous
  Country: US (occurrence: US)
  Receive Date: 20210122
  Receipt Date: 20210122
  Transmission Date: 20210419
  Serious: Yes (Hospitalization)
  Sender: FDA-Public Use
  Company Number: US-TEVA-2021-US-1869853

PATIENT
  Age: 56 Year
  Sex: Female

DRUGS (3)
  1. MESNA. [Concomitant]
     Active Substance: MESNA
     Indication: ENDOMETRIAL STROMAL SARCOMA
     Route: 065
     Dates: start: 201904, end: 201906
  2. DOXORUBICIN [Suspect]
     Active Substance: DOXORUBICIN
     Indication: ENDOMETRIAL STROMAL SARCOMA
     Route: 065
     Dates: start: 201904
  3. IFOSFAMIDE. [Concomitant]
     Active Substance: IFOSFAMIDE
     Indication: ENDOMETRIAL STROMAL SARCOMA
     Route: 065
     Dates: start: 201904, end: 201906

REACTIONS (1)
  - Pneumothorax [Recovered/Resolved]

NARRATIVE: CASE EVENT DATE: 201906
